FAERS Safety Report 8274872-7 (Version None)
Quarter: 2012Q2

REPORT INFORMATION
  Report Type: 
  Country: None (occurrence: None)
  Receive Date: 20120411
  Receipt Date: 20120405
  Transmission Date: 20120825
  Serious: Yes (Other)
  Sender: FDA-Public Use
  Company Number: JP-VERTEX PHARMACEUTICALS INC.-AE-2012-003361

PATIENT
  Age: 54 Year
  Sex: Male

DRUGS (6)
  1. MICARDIS [Concomitant]
     Route: 048
     Dates: start: 20120302
  2. RABEPRAZOLE SODIUM [Concomitant]
  3. RIBAVIRIN [Concomitant]
     Indication: HEPATITIS C
     Route: 048
     Dates: start: 20120229
  4. INTERFERON [Concomitant]
     Indication: HEPATITIS C
     Route: 058
     Dates: start: 20120229
  5. TELAVIC (TELAPREVIR) [Suspect]
     Indication: HEPATITIS C
     Route: 048
     Dates: start: 20120229, end: 20120304
  6. TELAVIC (TELAPREVIR) [Suspect]
     Route: 048
     Dates: start: 20120305

REACTIONS (1)
  - BLOOD UREA INCREASED [None]
